FAERS Safety Report 18917847 (Version 1)
Quarter: 2021Q1

REPORT INFORMATION
  Report Type: Spontaneous
  Country: DE (occurrence: CH)
  Receive Date: 20210219
  Receipt Date: 20210219
  Transmission Date: 20210420
  Serious: Yes (Hospitalization)
  Sender: FDA-Public Use
  Company Number: CH-ELI_LILLY_AND_COMPANY-CH202102009361

PATIENT
  Age: 65 Year
  Sex: Male

DRUGS (14)
  1. ERBITUX [Suspect]
     Active Substance: CETUXIMAB
     Dosage: 432 MG, WEEKLY (1/W)
     Route: 042
     Dates: start: 20200819
  2. ERBITUX [Suspect]
     Active Substance: CETUXIMAB
     Dosage: 425 MG, UNK
     Route: 042
     Dates: start: 20200915
  3. FLUOROURACIL. [Concomitant]
     Active Substance: FLUOROURACIL
     Indication: OROPHARYNGEAL CANCER
     Dosage: 1 DOSAGE FORM, UNK
     Dates: start: 20200812, end: 20200918
  4. ESOMEPRAZOLE. [Concomitant]
     Active Substance: ESOMEPRAZOLE MAGNESIUM
     Indication: PRODUCT USED FOR UNKNOWN INDICATION
     Dosage: UNK
  5. HYDROMORPHONE [Concomitant]
     Active Substance: HYDROMORPHONE
     Indication: PRODUCT USED FOR UNKNOWN INDICATION
     Dosage: UNK
  6. ERBITUX [Suspect]
     Active Substance: CETUXIMAB
     Indication: OROPHARYNGEAL CANCER
     Dosage: 690 MG, WEEKLY (1/W)
     Route: 041
     Dates: start: 20200812
  7. ERBITUX [Suspect]
     Active Substance: CETUXIMAB
     Dosage: 422 MG, UNK
     Route: 042
     Dates: start: 20201118
  8. MACROGOL SANDOZ [Concomitant]
     Active Substance: POLYETHYLENE GLYCOL 3350\POTASSIUM CHLORIDE\SODIUM BICARBONATE\SODIUM CHLORIDE
     Indication: PRODUCT USED FOR UNKNOWN INDICATION
     Dosage: UNK
  9. ERBITUX [Suspect]
     Active Substance: CETUXIMAB
     Dosage: 425 MG, UNK
     Route: 042
     Dates: start: 20201110
  10. PARAPLATIN [Concomitant]
     Active Substance: CARBOPLATIN
     Indication: OROPHARYNGEAL CANCER
     Dosage: 1 DOSAGE FORM, UNK
     Dates: start: 20200812, end: 20200915
  11. ERBITUX [Suspect]
     Active Substance: CETUXIMAB
     Dosage: 419 MG, UNK
     Route: 042
     Dates: start: 20201124, end: 20201124
  12. TAXOL [Concomitant]
     Active Substance: PACLITAXEL
     Indication: OROPHARYNGEAL CANCER
     Dosage: 1 DOSAGE FORM, UNK
     Dates: start: 20201118, end: 20201124
  13. PALLADON [Concomitant]
     Active Substance: HYDROMORPHONE
     Indication: PRODUCT USED FOR UNKNOWN INDICATION
     Dosage: UNK
  14. CALCIUM D3 SANDOZ [Concomitant]
     Active Substance: CALCIUM\CHOLECALCIFEROL
     Indication: PRODUCT USED FOR UNKNOWN INDICATION
     Dosage: UNK

REACTIONS (1)
  - Pneumatosis intestinalis [Not Recovered/Not Resolved]

NARRATIVE: CASE EVENT DATE: 20201201
